FAERS Safety Report 9133931 (Version 1)
Quarter: 2013Q1

REPORT INFORMATION
  Report Type: Spontaneous
  Country: SG (occurrence: SG)
  Receive Date: 20130127
  Receipt Date: 20130127
  Transmission Date: 20140127
  Serious: Yes (Death, Other)
  Sender: FDA-Public Use
  Company Number: SG-ROXANE LABORATORIES, INC.-2013-RO-00124RO

PATIENT
  Age: 53 Year
  Sex: Male

DRUGS (9)
  1. DEXAMETHASONE [Suspect]
     Indication: GLIOBLASTOMA MULTIFORME
     Route: 048
  2. DEXAMETHASONE [Suspect]
     Dosage: 4 MG
     Route: 048
  3. FLUCONAZOLE [Suspect]
     Indication: CRYPTOCOCCOSIS
     Route: 048
  4. TEMOZOLOMIDE [Suspect]
     Indication: GLIOBLASTOMA MULTIFORME
     Route: 048
  5. TEMOZOLOMIDE [Suspect]
     Route: 048
  6. SULFAMETHOXAZOLE [Suspect]
     Indication: ANTIBIOTIC PROPHYLAXIS
  7. TRIMETHOPRIM [Suspect]
     Indication: ANTIBIOTIC PROPHYLAXIS
  8. AMPHOTERICIN B [Concomitant]
     Indication: CRYPTOCOCCOSIS
     Route: 042
  9. FLUOCYTOSINE [Concomitant]
     Route: 042

REACTIONS (2)
  - Glioblastoma multiforme [Fatal]
  - Cryptococcosis [Recovered/Resolved]
